FAERS Safety Report 8505301-3 (Version None)
Quarter: 2012Q2

REPORT INFORMATION
  Report Type: 
  Country: None (occurrence: None)
  Receive Date: 20120405
  Receipt Date: 20100604
  Transmission Date: 20120825
  Serious: Yes (Other)
  Sender: FDA-Public Use
  Company Number: PHHY2010US36536

PATIENT
  Sex: Female

DRUGS (1)
  1. RECLAST [Suspect]
     Dosage: INFUSION

REACTIONS (6)
  - INSOMNIA [None]
  - PAIN IN EXTREMITY [None]
  - ARTHRALGIA [None]
  - NAUSEA [None]
  - WALKING AID USER [None]
  - ACTIVITIES OF DAILY LIVING IMPAIRED [None]
